FAERS Safety Report 19096644 (Version 1)
Quarter: 2021Q2

REPORT INFORMATION
  Report Type: Spontaneous
  Country: JP (occurrence: JP)
  Receive Date: 20210406
  Receipt Date: 20210406
  Transmission Date: 20210717
  Serious: Yes (Other)
  Sender: FDA-Public Use
  Company Number: JP-ROCHE-2756219

PATIENT
  Age: 7 Decade
  Sex: Female

DRUGS (2)
  1. AZATHIOPRINE. [Suspect]
     Active Substance: AZATHIOPRINE
     Indication: NEUROMYELITIS OPTICA SPECTRUM DISORDER
     Dosage: DOSE INTERVAL UNCERTAINTY
     Route: 065
  2. ENSPRYNG [Suspect]
     Active Substance: SATRALIZUMAB-MWGE
     Indication: NEUROMYELITIS OPTICA SPECTRUM DISORDER
     Dosage: ROUTE: HYPODERMIC
     Route: 058
     Dates: start: 20210104

REACTIONS (2)
  - Neuromyelitis optica spectrum disorder [Unknown]
  - Malaise [Unknown]

NARRATIVE: CASE EVENT DATE: 20210114
